FAERS Safety Report 18174738 (Version 1)
Quarter: 2020Q3

REPORT INFORMATION
  Report Type: Spontaneous
  Country: US (occurrence: US)
  Receive Date: 20200820
  Receipt Date: 20200820
  Transmission Date: 20201103
  Serious: No
  Sender: FDA-Public Use
  Company Number: None

PATIENT
  Age: 59 Year
  Sex: Female
  Weight: 63 kg

DRUGS (5)
  1. LEVOTHYROXINE 88MCG [Concomitant]
     Active Substance: LEVOTHYROXINE
  2. ZOLPIDEM [Concomitant]
     Active Substance: ZOLPIDEM TARTRATE
  3. LIOTHYRONINE 5MCG [Concomitant]
     Active Substance: LIOTHYRONINE
  4. CAPECITABINE. [Suspect]
     Active Substance: CAPECITABINE
     Indication: BREAST CANCER FEMALE
     Route: 048
     Dates: start: 20200730
  5. ONDANSETRON [Concomitant]
     Active Substance: ONDANSETRON

REACTIONS (3)
  - Nausea [None]
  - Constipation [None]
  - Diarrhoea [None]

NARRATIVE: CASE EVENT DATE: 20200820
